FAERS Safety Report 17519416 (Version 1)
Quarter: 2020Q1

REPORT INFORMATION
  Report Type: Spontaneous
  Country: US (occurrence: US)
  Receive Date: 20200310
  Receipt Date: 20200310
  Transmission Date: 20200409
  Serious: No
  Sender: FDA-Public Use
  Company Number: US-ALLERGAN-1941853US

PATIENT
  Sex: Female

DRUGS (1)
  1. ESTRACE [Suspect]
     Active Substance: ESTRADIOL
     Indication: ATROPHIC VULVOVAGINITIS
     Dosage: UNK UNK, BI-WEEKLY
     Route: 067

REACTIONS (4)
  - Adverse event [Unknown]
  - Blood oestrogen increased [Recovering/Resolving]
  - Therapy cessation [Unknown]
  - Alopecia [Unknown]
